FAERS Safety Report 11143763 (Version 2)
Quarter: 2015Q2

REPORT INFORMATION
  Report Type: Report from Study
  Country: US (occurrence: US)
  Receive Date: 20150526
  Receipt Date: 20150618
  Transmission Date: 20150821
  Serious: Yes (Death, Hospitalization)
  Sender: FDA-Public Use
  Company Number: US-ROCHE-1581030

PATIENT
  Age: 76 Year
  Sex: Female

DRUGS (13)
  1. 5-FU [Suspect]
     Active Substance: FLUOROURACIL
     Indication: METASTATIC GASTRIC CANCER
     Dosage: RECEIVED THE LAST DOSE PRIOR TO SAE ON 18/MAY/2011
     Route: 065
     Dates: start: 20110516
  2. METOPROLOL SUCCINATE. [Concomitant]
     Active Substance: METOPROLOL SUCCINATE
     Route: 065
     Dates: start: 20110531, end: 20110609
  3. CISPLATIN. [Suspect]
     Active Substance: CISPLATIN
     Indication: METASTATIC GASTRIC CANCER
     Dosage: RECEIVED THE LAST DOSE PRIOR TO SAE ON 18/MAY/2011
     Route: 065
     Dates: start: 20110516
  4. OMEPRAZOLE. [Concomitant]
     Active Substance: OMEPRAZOLE
     Route: 065
     Dates: start: 20110418, end: 20110630
  5. PAROXETINE [Concomitant]
     Active Substance: PAROXETINE\PAROXETINE HYDROCHLORIDE
     Route: 065
     Dates: start: 20110418, end: 20110630
  6. CARVEDILOL. [Concomitant]
     Active Substance: CARVEDILOL
     Route: 065
     Dates: start: 20110418, end: 20110630
  7. AMBIEN [Concomitant]
     Active Substance: ZOLPIDEM TARTRATE
     Route: 065
     Dates: start: 20110418
  8. LEUCOVORIN [Suspect]
     Active Substance: LEUCOVORIN
     Indication: METASTATIC GASTRIC CANCER
     Dosage: RECEIVED THE LAST DOSE PRIOR TO SAE ON 18/MAY/2011
     Route: 065
     Dates: start: 20110516
  9. DILTIAZEM [Concomitant]
     Active Substance: DILTIAZEM
     Route: 065
     Dates: start: 20110531, end: 20110609
  10. TRASTUZUMAB [Suspect]
     Active Substance: TRASTUZUMAB
     Indication: METASTATIC GASTRIC CANCER
     Dosage: RECEIVED THE LAST DOSE PRIOR TO SAE ON 18/MAY/2011
     Route: 065
     Dates: start: 20110516
  11. DOCETAXEL. [Suspect]
     Active Substance: DOCETAXEL
     Indication: METASTATIC GASTRIC CANCER
     Dosage: RECEIVED THE LAST DOSE PRIOR TO SAE ON 18/MAY/2011
     Route: 065
     Dates: start: 20110516
  12. DIGOXIN. [Concomitant]
     Active Substance: DIGOXIN
     Route: 065
     Dates: start: 20110531, end: 20110609
  13. WARFARIN [Concomitant]
     Active Substance: WARFARIN
     Route: 065
     Dates: start: 20110531, end: 20110609

REACTIONS (14)
  - Cellulitis [Unknown]
  - Haematemesis [Unknown]
  - Fatigue [Unknown]
  - Urinary tract infection [Unknown]
  - Melaena [Unknown]
  - Atrial fibrillation [Unknown]
  - Vomiting [Unknown]
  - Ventricular dysfunction [Unknown]
  - Pyrexia [Unknown]
  - Dehydration [Recovered/Resolved]
  - Diarrhoea [Recovered/Resolved]
  - Anaemia [Unknown]
  - Death [Fatal]
  - Gastrointestinal haemorrhage [Unknown]

NARRATIVE: CASE EVENT DATE: 20110520
